FAERS Safety Report 4391699-7 (Version None)
Quarter: 2004Q3

REPORT INFORMATION
  Report Type: 
  Country: None (occurrence: None)
  Receive Date: 20040701
  Receipt Date: 20040617
  Transmission Date: 20050211
  Serious: Yes (Hospitalization)
  Sender: FDA-Public Use
  Company Number: 171263

PATIENT
  Age: 50 Year
  Sex: Female

DRUGS (1)
  1. AVONEX [Suspect]
     Indication: MULTIPLE SCLEROSIS
     Dosage: 30 MCG QW IM
     Route: 030
     Dates: start: 20021001

REACTIONS (6)
  - ASTHMA [None]
  - COUGH [None]
  - GASTROINTESTINAL ULCER [None]
  - MARKEDLY REDUCED DIETARY INTAKE [None]
  - RENAL CYST [None]
  - WEIGHT DECREASED [None]
